FAERS Safety Report 7709440-6 (Version None)
Quarter: 2011Q3

REPORT INFORMATION
  Report Type: 
  Country: None (occurrence: None)
  Receive Date: 20110825
  Receipt Date: 20110815
  Transmission Date: 20111222
  Serious: Yes (Hospitalization, Other)
  Sender: FDA-Public Use
  Company Number: CA-ABBOTT-11P-028-0715167-00

PATIENT
  Sex: Female

DRUGS (18)
  1. HUMIRA [Suspect]
     Route: 058
     Dates: start: 20030729, end: 20110118
  2. MIRTAZAPINE [Concomitant]
     Indication: DEPRESSION
     Route: 048
     Dates: start: 20101123
  3. ACETAMINOPHEN [Concomitant]
     Indication: INFLUENZA LIKE ILLNESS
     Route: 048
     Dates: start: 20011010, end: 20011107
  4. PREDNISONE [Concomitant]
     Route: 048
     Dates: start: 20101204
  5. METHOTREXATE [Concomitant]
     Indication: RHEUMATOID ARTHRITIS
     Dates: start: 20010801
  6. PYRIDOXINE HCL [Concomitant]
     Indication: ANTIBIOTIC PROPHYLAXIS
     Route: 048
     Dates: start: 20060502
  7. PREDNISONE [Concomitant]
     Route: 048
     Dates: start: 20101124, end: 20101203
  8. ACETAMINOPHEN [Concomitant]
     Indication: HEADACHE
     Route: 048
     Dates: start: 20010607, end: 20010807
  9. MESALAMINE [Concomitant]
     Indication: COLITIS
     Route: 048
     Dates: start: 20101117
  10. ACETAMINOPHEN [Concomitant]
     Route: 048
     Dates: start: 20010805, end: 20010806
  11. PRILOSEC [Concomitant]
     Indication: DYSPEPSIA
     Route: 048
     Dates: start: 20090420
  12. PREDNISONE [Concomitant]
     Route: 048
     Dates: start: 20101103, end: 20101111
  13. CLONAZEPAM [Concomitant]
     Indication: DEPRESSION
     Route: 048
     Dates: start: 20101123
  14. PREDNISONE [Concomitant]
     Route: 048
     Dates: start: 20101118, end: 20101123
  15. PREDNISONE [Concomitant]
     Indication: COLITIS
     Route: 048
     Dates: start: 20101112, end: 20101117
  16. HUMIRA [Suspect]
     Indication: RHEUMATOID ARTHRITIS
     Route: 058
     Dates: start: 20010801, end: 20030701
  17. ACETAMINOPHEN [Concomitant]
     Indication: RHEUMATOID ARTHRITIS
     Route: 048
     Dates: start: 20001201
  18. IBUPROFEN [Concomitant]
     Indication: RHEUMATOID ARTHRITIS
     Route: 048
     Dates: start: 20041006

REACTIONS (2)
  - COLITIS [None]
  - DEEP VEIN THROMBOSIS [None]
